FAERS Safety Report 9536641 (Version 1)
Quarter: 2013Q2

REPORT INFORMATION
  Report Type: Spontaneous
  Country: US (occurrence: None)
  Receive Date: 20130517
  Receipt Date: 20130517
  Transmission Date: 20140414
  Serious: No
  Sender: FDA-Public Use
  Company Number: 1000044468

PATIENT
  Age: 60 Year
  Sex: Female

DRUGS (8)
  1. VIIBRYD (VILAZODONE HYDROCHLORIDE) (10 MILLIGRAM, TABLETS) [Suspect]
     Indication: DEPRESSION
     Dosage: 10 MG (10 MG, 1 IN 1 D), ORAL
     Route: 048
     Dates: start: 20121016, end: 20121022
  2. VIIBRYD (VILAZODONE HYDROCHLORIDE) (10 MILLIGRAM, TABLETS) [Suspect]
     Indication: ANXIETY
     Dosage: 10 MG (10 MG, 1 IN 1 D), ORAL
     Route: 048
     Dates: start: 20121016, end: 20121022
  3. VIIBRYD (VILAZODONE HYDROCHLORIDE) (40 MILLIGRAM, TABLETS) [Suspect]
     Indication: DEPRESSION
     Dosage: 40 MG (40 MG, 1 IN 1 D), ORAL
     Route: 048
     Dates: start: 20121030, end: 201211
  4. VIIBRYD (VILAZODONE HYDROCHLORIDE) (40 MILLIGRAM, TABLETS) [Suspect]
     Indication: ANXIETY
     Dosage: 40 MG (40 MG, 1 IN 1 D), ORAL
     Route: 048
     Dates: start: 20121030, end: 201211
  5. AMBIEN (ZOLPIDEM TARTRATE) (ZOLPIDEM TARTRATE) [Concomitant]
  6. METOPROLOL (METOPROLOL) (METOPROLOL) [Concomitant]
  7. LANSOPRAZOLE (LANSOPRAZOLE) (LANSOPRAZOLE) [Concomitant]
  8. HYDROCHLOROTHIAZIDE (HYDROCHLOROTHIAZIDE) (HYDROCHLOROTHIAZIDE) [Concomitant]

REACTIONS (7)
  - Chest discomfort [None]
  - Heart rate decreased [None]
  - Nausea [None]
  - Tinnitus [None]
  - Insomnia [None]
  - Weight increased [None]
  - Gastrooesophageal reflux disease [None]
